FAERS Safety Report 12683857 (Version 2)
Quarter: 2016Q4

REPORT INFORMATION
  Report Type: Spontaneous
  Country: US (occurrence: US)
  Receive Date: 20160825
  Receipt Date: 20161007
  Transmission Date: 20170207
  Serious: Yes (Other)
  Sender: FDA-Public Use
  Company Number: US-PFIZER INC-2016399065

PATIENT
  Age: 58 Year
  Sex: Male

DRUGS (8)
  1. LYRICA [Suspect]
     Active Substance: PREGABALIN
     Indication: RADICULOPATHY
  2. LYRICA [Suspect]
     Active Substance: PREGABALIN
     Indication: ARTHRODESIS
  3. OXYCODONE HYDROCHLORIDE. [Concomitant]
     Active Substance: OXYCODONE HYDROCHLORIDE
     Dosage: 2 TABS, ORAL, TWICE DAILY
     Route: 048
  4. LYRICA [Suspect]
     Active Substance: PREGABALIN
     Indication: SPONDYLOLISTHESIS
     Dosage: 75 MG, 2X/DAY
     Route: 048
  5. VALIUM [Concomitant]
     Active Substance: DIAZEPAM
     Indication: AGITATION
     Dosage: 10 MG, 3X/DAY  AS NEEDED
     Route: 048
  6. PERCOCET [Concomitant]
     Active Substance: ACETAMINOPHEN\OXYCODONE HYDROCHLORIDE
     Indication: PAIN
     Dosage: (10 MG-325MG)1-2 TABS ORAL EVERY 6 HR
     Route: 048
  7. SOMA [Concomitant]
     Active Substance: CARISOPRODOL
     Dosage: 350 MG, 3X/DAY AS NEEDED
     Route: 048
  8. PROVENTIL HFA [Concomitant]
     Active Substance: ALBUTEROL SULFATE
     Dosage: 1 DF, 4X/DAY (90 MCG/INH INHALATION AEROSOL WITH ADAPTER) (1 PUFFS ORAL QID)
     Route: 055

REACTIONS (1)
  - Spinal cord disorder [Unknown]
